FAERS Safety Report 4780131-7 (Version None)
Quarter: 2005Q3

REPORT INFORMATION
  Report Type: 
  Country: None (occurrence: None)
  Receive Date: 20050914
  Receipt Date: 20050706
  Transmission Date: 20060218
  Serious: Yes (Other)
  Sender: FDA-Public Use
  Company Number: 163-20785-05070106

PATIENT

DRUGS (2)
  1. THALOMID [Suspect]
     Indication: HEPATIC NEOPLASM MALIGNANT
     Dosage: 200MG PO QD TIRATING UPWARD X200MG Q 2 WKS, QHS, ORAL
     Route: 048
     Dates: start: 20030424
  2. DOXORUBICIN HCL [Suspect]
     Indication: HEPATIC NEOPLASM MALIGNANT
     Dosage: 100 MG, INTRA-ARTERIAL
     Route: 013

REACTIONS (1)
  - ASPARTATE AMINOTRANSFERASE INCREASED [None]
